FAERS Safety Report 11598693 (Version 1)
Quarter: 2015Q3

REPORT INFORMATION
  Report Type: Spontaneous
  Country: US (occurrence: US)
  Receive Date: 20150916
  Receipt Date: 20150916
  Transmission Date: 20151125
  Serious: No
  Sender: FDA-Public Use
  Company Number: US-ELI_LILLY_AND_COMPANY-US200712000511

PATIENT
  Sex: Female

DRUGS (9)
  1. VITAMINS [Concomitant]
     Active Substance: VITAMINS
  2. ASPIRIN. [Concomitant]
     Active Substance: ASPIRIN
  3. ELIMIN [Concomitant]
  4. CALCIUM [Concomitant]
     Active Substance: CALCIUM
     Dosage: 150 MG, UNK
  5. RESTORIL [Concomitant]
     Active Substance: TEMAZEPAM
  6. MAXZIDE [Concomitant]
     Active Substance: HYDROCHLOROTHIAZIDE\TRIAMTERENE
  7. LIPITOR /01326102/ [Concomitant]
  8. FORTEO [Suspect]
     Active Substance: TERIPARATIDE
     Dates: start: 20051128, end: 20071128
  9. ACIPHEX [Concomitant]
     Active Substance: RABEPRAZOLE SODIUM

REACTIONS (1)
  - Multiple fractures [Unknown]

NARRATIVE: CASE EVENT DATE: 2005
